FAERS Safety Report 4550791-4 (Version None)
Quarter: 2005Q1

REPORT INFORMATION
  Report Type: 
  Country: None (occurrence: None)
  Receive Date: 20050112
  Receipt Date: 20040930
  Transmission Date: 20050727
  Serious: Yes (Life-Threatening, Hospitalization, Other)
  Sender: FDA-Public Use
  Company Number: US-MERCK-0410USA00040

PATIENT
  Age: 44 Year
  Sex: Female
  Weight: 108 kg

DRUGS (4)
  1. VIOXX [Suspect]
     Indication: BACK PAIN
     Route: 048
     Dates: start: 20020201, end: 20021001
  2. VIOXX [Suspect]
     Indication: PELVIC PAIN
     Route: 048
     Dates: start: 20020201, end: 20021001
  3. NEXIUM [Concomitant]
     Route: 065
  4. TRIPHASIL-21 [Concomitant]
     Route: 065

REACTIONS (3)
  - ACCELERATED HYPERTENSION [None]
  - BLOOD PRESSURE INCREASED [None]
  - GALLBLADDER DISORDER [None]
